FAERS Safety Report 11767475 (Version 1)
Quarter: 2015Q4

REPORT INFORMATION
  Report Type: Report from Study
  Country: CA (occurrence: CA)
  Receive Date: 20151123
  Receipt Date: 20151123
  Transmission Date: 20160304
  Serious: Yes (Life-Threatening)
  Sender: FDA-Public Use
  Company Number: CA-JNJFOC-20151120688

PATIENT
  Age: 68 Year
  Sex: Female
  Weight: 85.5 kg

DRUGS (1)
  1. REMICADE [Suspect]
     Active Substance: INFLIXIMAB
     Indication: PSORIASIS
     Route: 042
     Dates: start: 201108, end: 201201

REACTIONS (1)
  - Uterine cancer [Recovered/Resolved]

NARRATIVE: CASE EVENT DATE: 20151103
